FAERS Safety Report 11469078 (Version 1)
Quarter: 2015Q3

REPORT INFORMATION
  Report Type: Spontaneous
  Country: US (occurrence: US)
  Receive Date: 20150908
  Receipt Date: 20150908
  Transmission Date: 20151125
  Serious: No
  Sender: FDA-Public Use
  Company Number: US-GLAXOSMITHKLINE-US2015GSK121940

PATIENT
  Age: 65 Year
  Sex: Female

DRUGS (1)
  1. VOTRIENT [Suspect]
     Active Substance: PAZOPANIB HYDROCHLORIDE
     Indication: RENAL CANCER
     Dosage: 800 MG, QD
     Route: 048
     Dates: start: 20150424

REACTIONS (6)
  - Dysstasia [Unknown]
  - Haematoma [Unknown]
  - Pain [Unknown]
  - Platelet count decreased [Unknown]
  - Haemoptysis [Unknown]
  - Oedema peripheral [Unknown]
